FAERS Safety Report 6596685-4 (Version None)
Quarter: 2010Q1

REPORT INFORMATION
  Report Type: 
  Country: None (occurrence: None)
  Receive Date: 20100223
  Receipt Date: 20091010
  Transmission Date: 20100710
  Serious: No
  Sender: FDA-Public Use
  Company Number: US-BAYER-201011512GPV

PATIENT
  Age: 56 Year
  Sex: Female

DRUGS (9)
  1. CAMPATH [Suspect]
     Indication: CHRONIC LYMPHOCYTIC LEUKAEMIA
     Route: 042
     Dates: start: 20090801
  2. MOBIC [Concomitant]
     Indication: ARTHRITIS
     Route: 065
     Dates: end: 20090801
  3. ASPIRIN [Concomitant]
     Indication: ARTHRITIS
     Route: 065
  4. VALCYTE [Concomitant]
     Indication: INFECTION PROPHYLAXIS
     Route: 065
  5. BACTRIM [Concomitant]
     Indication: INFECTION PROPHYLAXIS
     Route: 065
  6. FLUCONAZOLE [Concomitant]
     Indication: INFECTION PROPHYLAXIS
     Route: 065
  7. NEUPOGEN [Concomitant]
     Route: 065
  8. TYLENOL-500 [Concomitant]
     Indication: PREMEDICATION
     Route: 065
  9. BENADRYL [Concomitant]
     Indication: PREMEDICATION
     Route: 065

REACTIONS (3)
  - ARTHRALGIA [None]
  - ILL-DEFINED DISORDER [None]
  - JOINT SWELLING [None]
